FAERS Safety Report 25365613 (Version 1)
Quarter: 2025Q2

REPORT INFORMATION
  Report Type: Report from Study
  Country: US (occurrence: US)
  Receive Date: 20250527
  Receipt Date: 20250527
  Transmission Date: 20250717
  Serious: Yes (Hospitalization)
  Sender: ABBVIE
  Company Number: US-ABBVIE-6291804

PATIENT
  Age: 78 Year
  Sex: Female

DRUGS (1)
  1. RINVOQ [Suspect]
     Active Substance: UPADACITINIB
     Indication: Colitis ulcerative
     Route: 048
     Dates: start: 20250319, end: 20250423

REACTIONS (4)
  - Colectomy [Recovering/Resolving]
  - Drug ineffective [Unknown]
  - Ileectomy [Recovering/Resolving]
  - Proctectomy [Recovering/Resolving]

NARRATIVE: CASE EVENT DATE: 20250101
